FAERS Safety Report 6260273-X (Version None)
Quarter: 2009Q3

REPORT INFORMATION
  Report Type: 
  Country: None (occurrence: None)
  Receive Date: 20090708
  Receipt Date: 20090701
  Transmission Date: 20100115
  Serious: Yes (Hospitalization)
  Sender: FDA-Public Use
  Company Number: GB-AVENTIS-200916549GDDC

PATIENT
  Age: 68 Year
  Sex: Female

DRUGS (1)
  1. TAXOTERE [Suspect]
     Route: 042
     Dates: start: 20090107, end: 20090107

REACTIONS (2)
  - OPTIC NERVE DISORDER [None]
  - VISION BLURRED [None]
